FAERS Safety Report 8169008-7 (Version None)
Quarter: 2012Q1

REPORT INFORMATION
  Report Type: 
  Country: None (occurrence: None)
  Receive Date: 20120227
  Receipt Date: 20120217
  Transmission Date: 20120608
  Serious: Yes (Hospitalization)
  Sender: FDA-Public Use
  Company Number: PHHY2012FR014146

PATIENT
  Age: 21 Year
  Sex: Male

DRUGS (2)
  1. METRONIDAZOLE [Suspect]
     Indication: BRAIN ABSCESS
     Dosage: 1.5 MG, QD
     Route: 048
  2. CEFTRIAXONE [Concomitant]
     Indication: BRAIN ABSCESS
     Dosage: 4 G, QD
     Route: 042

REACTIONS (14)
  - CEREBELLAR SYNDROME [None]
  - NYSTAGMUS [None]
  - NAUSEA [None]
  - VOMITING [None]
  - DIPLOPIA [None]
  - PARAESTHESIA [None]
  - TOXIC ENCEPHALOPATHY [None]
  - SOMNOLENCE [None]
  - DIZZINESS [None]
  - DYSARTHRIA [None]
  - VITH NERVE PARALYSIS [None]
  - SENSORY LOSS [None]
  - AXONAL NEUROPATHY [None]
  - ATAXIA [None]
